FAERS Safety Report 7527501-1 (Version None)
Quarter: 2011Q2

REPORT INFORMATION
  Report Type: 
  Country: None (occurrence: None)
  Receive Date: 20110607
  Receipt Date: 20110509
  Transmission Date: 20111010
  Serious: Yes (Other)
  Sender: FDA-Public Use
  Company Number: US-BAYER-201039247NA

PATIENT
  Age: 29 Year
  Sex: Female
  Weight: 86 kg

DRUGS (8)
  1. YAZ [Suspect]
     Indication: PREMENSTRUAL SYNDROME
     Route: 048
     Dates: start: 20061201
  2. ASCORBIC ACID [Concomitant]
  3. COREG [Concomitant]
     Dosage: 6.25 MG, QD
     Route: 048
  4. VALTREX [Concomitant]
     Dosage: 500 MG, UNK
     Route: 048
  5. SINGULAIR [Concomitant]
  6. YASMIN [Suspect]
     Indication: ENDOMETRIOSIS
  7. FLONASE [Concomitant]
  8. YASMIN [Suspect]
     Indication: PREMENSTRUAL SYNDROME
     Route: 048
     Dates: start: 20051001

REACTIONS (4)
  - CHOLECYSTITIS CHRONIC [None]
  - PAIN [None]
  - GALLBLADDER NON-FUNCTIONING [None]
  - BILIARY DYSKINESIA [None]
